FAERS Safety Report 5844820-5 (Version None)
Quarter: 2008Q3

REPORT INFORMATION
  Report Type: 
  Country: None (occurrence: None)
  Receive Date: 20080814
  Receipt Date: 20080812
  Transmission Date: 20090109
  Serious: Yes (Death, Hospitalization)
  Sender: FDA-Public Use
  Company Number: US-BRISTOL-MYERS SQUIBB COMPANY-14274591

PATIENT
  Age: 76 Year
  Sex: Female
  Weight: 61 kg

DRUGS (6)
  1. CYTOXAN [Suspect]
     Indication: BREAST CANCER
     Dosage: LOT #: 7H574G-17MAR08, 71575A-31MAR08, 71578B-14APR08, 71575B-25APR08, 71575B-12MAY08
     Route: 042
     Dates: start: 20080512, end: 20080512
  2. TAXOTERE [Suspect]
     Indication: BREAST CANCER
     Route: 042
     Dates: start: 20080512, end: 20080512
  3. NEULASTA [Suspect]
     Route: 065
     Dates: start: 20080513, end: 20080513
  4. ARANESP [Suspect]
     Route: 065
     Dates: start: 20080513, end: 20080513
  5. ALOXI [Suspect]
     Route: 065
     Dates: start: 20080512, end: 20080512
  6. EMEND [Suspect]
     Route: 065
     Dates: start: 20080512, end: 20080512

REACTIONS (1)
  - INTERSTITIAL LUNG DISEASE [None]
